FAERS Safety Report 20035723 (Version 1)
Quarter: 2021Q4

REPORT INFORMATION
  Report Type: Spontaneous
  Country: CN (occurrence: CN)
  Receive Date: 20211104
  Receipt Date: 20211104
  Transmission Date: 20220303
  Serious: Yes (Other)
  Sender: FDA-Public Use
  Company Number: CN-BAXTER-2021BAX034578

PATIENT
  Age: 56 Year
  Sex: Female

DRUGS (2)
  1. METRONIDAZOLE\SODIUM CHLORIDE [Suspect]
     Active Substance: METRONIDAZOLE\SODIUM CHLORIDE
     Indication: Urinary tract infection
     Route: 041
     Dates: start: 20210827, end: 20210906
  2. CEFOPERAZONE SODIUM\SULBACTAM SODIUM [Suspect]
     Active Substance: CEFOPERAZONE SODIUM\SULBACTAM SODIUM
     Indication: Urinary tract infection
     Route: 041
     Dates: start: 20210827, end: 20210903

REACTIONS (1)
  - Generalised tonic-clonic seizure [Recovering/Resolving]

NARRATIVE: CASE EVENT DATE: 20210903
